FAERS Safety Report 17956553 (Version 2)
Quarter: 2020Q4

REPORT INFORMATION
  Report Type: Spontaneous
  Country: US (occurrence: US)
  Receive Date: 20200629
  Receipt Date: 20201111
  Transmission Date: 20210113
  Serious: Yes (Other)
  Sender: FDA-Public Use
  Company Number: US-ASTRAZENECA-2020SE80450

PATIENT
  Age: 68 Year
  Sex: Male
  Weight: 90.7 kg

DRUGS (40)
  1. LOSARTAN. [Concomitant]
     Active Substance: LOSARTAN
     Route: 065
     Dates: start: 2012
  2. GLIMEPIRIDE. [Concomitant]
     Active Substance: GLIMEPIRIDE
     Route: 065
     Dates: start: 2012
  3. MULTIVITAMIN [Concomitant]
     Active Substance: VITAMINS
     Indication: ROUTINE HEALTH MAINTENANCE
     Route: 065
     Dates: start: 2012
  4. AUGMENTIN [Concomitant]
     Active Substance: AMOXICILLIN\CLAVULANATE POTASSIUM
     Route: 065
     Dates: start: 20080501
  5. TRILIPIX [Concomitant]
     Active Substance: FENOFIBRIC ACID
     Route: 065
     Dates: start: 20070627
  6. LEVAQUIN [Concomitant]
     Active Substance: LEVOFLOXACIN
     Route: 065
     Dates: start: 20100611
  7. NEXIUM [Suspect]
     Active Substance: ESOMEPRAZOLE MAGNESIUM
     Indication: GASTROOESOPHAGEAL REFLUX DISEASE
     Dosage: UNKNOWN
     Route: 048
     Dates: start: 2012
  8. PRILOSEC OTC [Suspect]
     Active Substance: OMEPRAZOLE MAGNESIUM
     Indication: GASTROOESOPHAGEAL REFLUX DISEASE
     Route: 048
     Dates: start: 2012, end: 2016
  9. AVAPRO [Concomitant]
     Active Substance: IRBESARTAN
     Route: 065
     Dates: start: 20101119
  10. NEXIUM [Suspect]
     Active Substance: ESOMEPRAZOLE MAGNESIUM
     Indication: GASTROOESOPHAGEAL REFLUX DISEASE
     Dosage: 40.0MG UNKNOWN
     Route: 048
     Dates: start: 2011, end: 2013
  11. ZANTAC [Concomitant]
     Active Substance: RANITIDINE HYDROCHLORIDE
     Route: 065
  12. DIGOXIN. [Concomitant]
     Active Substance: DIGOXIN
     Route: 065
     Dates: start: 20121227
  13. MICARDIS [Concomitant]
     Active Substance: TELMISARTAN
     Route: 065
     Dates: start: 20101119
  14. TRIAMCINOLONE [Concomitant]
     Active Substance: TRIAMCINOLONE
     Route: 065
     Dates: start: 20100601
  15. METFORMIN [Concomitant]
     Active Substance: METFORMIN HYDROCHLORIDE
     Route: 065
     Dates: start: 2012
  16. ASPIRIN. [Concomitant]
     Active Substance: ASPIRIN
     Indication: ANTICOAGULANT THERAPY
     Route: 065
     Dates: start: 2012, end: 2014
  17. MEGARED [Concomitant]
     Route: 065
     Dates: start: 2016
  18. CARVEDILOL. [Concomitant]
     Active Substance: CARVEDILOL
     Route: 065
     Dates: start: 20120628
  19. WARFARIN [Concomitant]
     Active Substance: WARFARIN
     Route: 065
     Dates: start: 20120628
  20. NIASPAN [Concomitant]
     Active Substance: NIACIN
     Route: 065
     Dates: start: 20120628
  21. NEXIUM [Suspect]
     Active Substance: ESOMEPRAZOLE MAGNESIUM
     Indication: GASTROOESOPHAGEAL REFLUX DISEASE
     Route: 048
     Dates: start: 2012, end: 2016
  22. KLOR [Concomitant]
     Route: 065
     Dates: start: 2012
  23. AMLODIPINE [Concomitant]
     Active Substance: AMLODIPINE BESYLATE
     Route: 065
     Dates: start: 2012
  24. CITALOPRAM [Concomitant]
     Active Substance: CITALOPRAM HYDROBROMIDE
     Route: 065
     Dates: start: 2012
  25. ALKA-SELTZER [Concomitant]
     Active Substance: ANHYDROUS CITRIC ACID\ASPIRIN\SODIUM BICARBONATE
     Route: 065
  26. HYDROCHLOROTHIAZIDE. [Concomitant]
     Active Substance: HYDROCHLOROTHIAZIDE
     Route: 065
     Dates: start: 20101119
  27. LEXAPRO [Concomitant]
     Active Substance: ESCITALOPRAM OXALATE
     Route: 065
     Dates: start: 20101119
  28. CEFTRIAXONE SODIUM. [Concomitant]
     Active Substance: CEFTRIAXONE SODIUM
     Route: 065
     Dates: start: 20100601
  29. CLOPIDOGREL [Concomitant]
     Active Substance: CLOPIDOGREL BISULFATE
     Route: 065
     Dates: start: 20070517
  30. PRAMIPEXOLE. [Concomitant]
     Active Substance: PRAMIPEXOLE
     Route: 065
     Dates: start: 20110415
  31. NEXIUM [Suspect]
     Active Substance: ESOMEPRAZOLE MAGNESIUM
     Indication: GASTROOESOPHAGEAL REFLUX DISEASE
     Dosage: 40.0MG UNKNOWN
     Route: 048
     Dates: start: 20090109
  32. VASCEPA [Concomitant]
     Active Substance: ICOSAPENT ETHYL
     Route: 065
     Dates: start: 2012
  33. SPIRONOLACTONE. [Concomitant]
     Active Substance: SPIRONOLACTONE
     Route: 065
     Dates: start: 20120530
  34. CIALIS [Concomitant]
     Active Substance: TADALAFIL
     Route: 065
     Dates: start: 20080501
  35. VYTORIN [Concomitant]
     Active Substance: EZETIMIBE\SIMVASTATIN
     Route: 065
     Dates: start: 20070517
  36. ANDROGEL [Concomitant]
     Active Substance: TESTOSTERONE
     Route: 065
     Dates: start: 20071107
  37. LASIX [Concomitant]
     Active Substance: FUROSEMIDE
     Route: 065
     Dates: start: 20120628
  38. JANUVIA [Concomitant]
     Active Substance: SITAGLIPTIN PHOSPHATE
     Route: 065
     Dates: start: 20100401
  39. CIPRO [Concomitant]
     Active Substance: CIPROFLOXACIN HYDROCHLORIDE
     Route: 065
     Dates: start: 20070627
  40. NUVIGIL [Concomitant]
     Active Substance: ARMODAFINIL
     Route: 065
     Dates: start: 20110415

REACTIONS (2)
  - Gastric disorder [Not Recovered/Not Resolved]
  - Chronic kidney disease [Unknown]

NARRATIVE: CASE EVENT DATE: 2012
